FAERS Safety Report 5463354-3 (Version None)
Quarter: 2007Q3

REPORT INFORMATION
  Report Type: 
  Country: None (occurrence: None)
  Receive Date: 20070920
  Receipt Date: 20070917
  Transmission Date: 20080115
  Serious: No
  Sender: FDA-Public Use
  Company Number: US-BAXTER-2007BH007741

PATIENT

DRUGS (1)
  1. NITROGLYCERIN IN DEXTROSE 5% [Suspect]
     Indication: MYOCARDIAL INFARCTION
     Dosage: DOSE UNIT:CUBIC CENTIMETER
     Route: 042

REACTIONS (4)
  - ACCIDENTAL OVERDOSE [None]
  - BLOOD PRESSURE DECREASED [None]
  - DEVICE MALFUNCTION [None]
  - VOMITING [None]
